FAERS Safety Report 10528681 (Version 2)
Quarter: 2014Q4

REPORT INFORMATION
  Report Type: Report from Study
  Country: US (occurrence: US)
  Receive Date: 20141020
  Receipt Date: 20141027
  Transmission Date: 20150528
  Serious: Yes (Other)
  Sender: FDA-Public Use
  Company Number: US-BAXTER-2014BAX061503

PATIENT
  Sex: Female

DRUGS (1)
  1. GAMMAGARD LIQUID [Suspect]
     Active Substance: HUMAN IMMUNOGLOBULIN G
     Indication: PRIMARY IMMUNODEFICIENCY SYNDROME
     Route: 042
     Dates: start: 201406

REACTIONS (3)
  - Renal disorder [Not Recovered/Not Resolved]
  - Urine output decreased [Not Recovered/Not Resolved]
  - Weight increased [Not Recovered/Not Resolved]
